FAERS Safety Report 19087118 (Version 1)
Quarter: 2021Q2

REPORT INFORMATION
  Report Type: Spontaneous
  Country: CN (occurrence: CN)
  Receive Date: 20210402
  Receipt Date: 20210402
  Transmission Date: 20210717
  Serious: Yes (Hospitalization, Other)
  Sender: FDA-Public Use
  Company Number: CN-PFIZER INC-2021330784

PATIENT
  Age: 61 Year
  Sex: Male

DRUGS (2)
  1. CATEQUENTINIB. [Concomitant]
     Active Substance: CATEQUENTINIB
     Indication: LUNG CANCER METASTATIC
     Dosage: UNK
     Dates: start: 20210108
  2. CRIZOTINIB [Suspect]
     Active Substance: CRIZOTINIB
     Indication: LUNG CANCER METASTATIC
     Dosage: 50.000 MG, 2X/DAY
     Route: 048
     Dates: start: 20210108, end: 20210301

REACTIONS (2)
  - Hepatic function abnormal [Recovering/Resolving]
  - Dysphagia [Unknown]

NARRATIVE: CASE EVENT DATE: 20210227
